FAERS Safety Report 8152737-9 (Version None)
Quarter: 2012Q1

REPORT INFORMATION
  Report Type: 
  Country: None (occurrence: None)
  Receive Date: 20120103
  Receipt Date: 20111006
  Transmission Date: 20120608
  Serious: No
  Sender: FDA-Public Use
  Company Number: AE-2011-002104

PATIENT
  Age: 24 Year
  Sex: Male

DRUGS (3)
  1. RIBAVIRIN [Concomitant]
  2. INCIVEK [Suspect]
     Dosage: (2 TABS), ORAL
     Route: 048
     Dates: start: 20110930
  3. PEGASYS [Concomitant]

REACTIONS (2)
  - HAEMORRHOIDS [None]
  - ANAL HAEMORRHAGE [None]
